FAERS Safety Report 7590216-8 (Version None)
Quarter: 2011Q3

REPORT INFORMATION
  Report Type: 
  Country: None (occurrence: None)
  Receive Date: 20110705
  Receipt Date: 20110628
  Transmission Date: 20111222
  Serious: Yes (Hospitalization, Other)
  Sender: FDA-Public Use
  Company Number: US-ACTELION-A-US2011-50155

PATIENT

DRUGS (3)
  1. COUMADIN [Concomitant]
  2. REVATIO [Concomitant]
  3. TRACLEER [Suspect]
     Indication: PULMONARY ARTERIAL HYPERTENSION
     Dosage: 62.5 MG, BID
     Route: 048
     Dates: start: 20110517, end: 20110613

REACTIONS (10)
  - FACE OEDEMA [None]
  - LOCALISED OEDEMA [None]
  - DYSPNOEA [None]
  - OEDEMA [None]
  - FLUID OVERLOAD [None]
  - FLUID RETENTION [None]
  - WEIGHT DECREASED [None]
  - WEIGHT INCREASED [None]
  - PLEURAL EFFUSION [None]
  - EYE SWELLING [None]
